FAERS Safety Report 6309543-7 (Version None)
Quarter: 2009Q3

REPORT INFORMATION
  Report Type: 
  Country: None (occurrence: None)
  Receive Date: 20090814
  Receipt Date: 20090806
  Transmission Date: 20100115
  Serious: Yes (Hospitalization, Other)
  Sender: FDA-Public Use
  Company Number: US-BAYER-200714293BWH

PATIENT
  Age: 72 Year
  Sex: Male

DRUGS (3)
  1. NEXAVAR [Suspect]
     Indication: METASTATIC RENAL CELL CARCINOMA
     Dosage: TOTAL DAILY DOSE: 800 MG  UNIT DOSE: 200 MG
     Route: 048
     Dates: start: 20071019, end: 20081201
  2. NEXAVAR [Suspect]
     Dosage: TOTAL DAILY DOSE: 800 MG  UNIT DOSE: 200 MG
     Route: 048
     Dates: start: 20090624
  3. ZOMETA [Concomitant]

REACTIONS (18)
  - ARTHRALGIA [None]
  - BLOOD PRESSURE INCREASED [None]
  - CONSTIPATION [None]
  - DECREASED APPETITE [None]
  - DIARRHOEA [None]
  - HAEMATOCHEZIA [None]
  - HOT FLUSH [None]
  - HYPERHIDROSIS [None]
  - MYALGIA [None]
  - NECK PAIN [None]
  - OESOPHAGEAL ULCER [None]
  - PRURITUS [None]
  - RASH ERYTHEMATOUS [None]
  - RETCHING [None]
  - SKIN BURNING SENSATION [None]
  - SKIN EXFOLIATION [None]
  - SKIN ULCER [None]
  - WEIGHT DECREASED [None]
